FAERS Safety Report 23878582 (Version 2)
Quarter: 2024Q2

REPORT INFORMATION
  Report Type: Spontaneous
  Country: US (occurrence: US)
  Receive Date: 20240521
  Receipt Date: 20240624
  Transmission Date: 20240716
  Serious: Yes (Death)
  Sender: FDA-Public Use
  Company Number: US-PFIZER INC-PV202400065747

PATIENT
  Age: 84 Year
  Sex: Male
  Weight: 59.6 kg

DRUGS (8)
  1. VYNDAMAX [Suspect]
     Active Substance: TAFAMIDIS
     Indication: Hereditary neuropathic amyloidosis
     Dosage: 61 MG, DAILY
     Route: 048
     Dates: start: 20221110, end: 202405
  2. ASPIRIN [Concomitant]
     Active Substance: ASPIRIN
     Dosage: 81 MG, DAILY
  3. EPLERENONE [Concomitant]
     Active Substance: EPLERENONE
     Dosage: 25 MG, DAILY
  4. FUROSEMIDE [Concomitant]
     Active Substance: FUROSEMIDE
     Dosage: 20 MG, 2X/WEEK
  5. JARDIANCE [Concomitant]
     Active Substance: EMPAGLIFLOZIN
     Dosage: 10 MG, DAILY
  6. KCL [Concomitant]
     Active Substance: POTASSIUM CHLORIDE
     Dosage: 20 MEQ, 2X/WEEK
  7. VITAMIN A ACETATE [Concomitant]
     Active Substance: VITAMIN A ACETATE
     Dosage: 10000 IU, DAILY
  8. AMVUTTRA [Concomitant]
     Active Substance: VUTRISIRAN
     Dosage: 25 MG SQ Q3 MONTHS
     Route: 058

REACTIONS (2)
  - Hereditary neuropathic amyloidosis [Fatal]
  - Disease progression [Fatal]
